FAERS Safety Report 8609193 (Version 6)
Quarter: 2012Q4

REPORT INFORMATION
  Report Type: Report from Study
  Country: ZA (occurrence: ZA)
  Receive Date: 20120611
  Receipt Date: 20120917
  Transmission Date: 20130627
  Serious: Yes (Hospitalization, Other)
  Sender: FDA-Public Use
  Company Number: ZA-ROCHE-1072930

PATIENT
  Age: 53 Year
  Sex: Female
  Weight: 82 kg

DRUGS (42)
  1. UNSPECIFIED INGREDIENT [Concomitant]
     Route: 065
     Dates: start: 2010
  2. TREPILINE [Concomitant]
     Route: 048
     Dates: start: 2007
  3. FOLIC ACID [Concomitant]
     Route: 065
     Dates: start: 20110304
  4. CHOLECALCIFEROL [Concomitant]
     Route: 065
     Dates: start: 20110304
  5. PREDNISOLONE [Concomitant]
     Route: 065
     Dates: start: 20110623
  6. NUZAK [Concomitant]
     Route: 065
     Dates: start: 20110729
  7. NUZAK [Concomitant]
     Route: 048
  8. BRAZEPAM [Concomitant]
     Route: 065
     Dates: start: 20110916
  9. CELEBREX [Concomitant]
     Route: 065
     Dates: start: 2010
  10. TRAMAL [Concomitant]
     Route: 030
     Dates: start: 20120522
  11. DORMONOCT [Concomitant]
     Route: 048
     Dates: start: 20120522
  12. STOPAYNE [Concomitant]
     Dosage: 2 tabs 6-8 hrly pm
     Route: 065
     Dates: start: 20120523
  13. PICOPREP [Concomitant]
     Route: 048
     Dates: start: 20120525
  14. CRESTOR [Concomitant]
     Route: 065
     Dates: start: 20120525
  15. CRESTOR [Concomitant]
     Route: 048
     Dates: start: 20120526, end: 20120530
  16. ASPIRIN [Concomitant]
     Route: 065
     Dates: start: 20120525
  17. ASPIRIN [Concomitant]
     Route: 048
     Dates: end: 20120527
  18. ASPIRIN [Concomitant]
     Route: 048
     Dates: start: 20120330
  19. PERFALGAN [Concomitant]
     Route: 050
     Dates: start: 20120527
  20. CEFAZOLIN [Concomitant]
     Route: 050
     Dates: start: 20120526
  21. CLEXANE [Concomitant]
     Route: 058
     Dates: start: 20120528, end: 20120531
  22. ERYTHROMYCIN [Concomitant]
     Route: 048
     Dates: start: 20120530, end: 20120530
  23. POTASSIUM CHLORIDE [Concomitant]
     Dosage: 40 mmol stat
     Route: 050
     Dates: start: 20120529
  24. TRAMACET [Concomitant]
     Route: 048
     Dates: start: 20120529, end: 20120530
  25. PANTOCID [Concomitant]
     Route: 048
     Dates: start: 20120529
  26. VOLTAREN SUPPOSITORY [Concomitant]
     Dosage: 12hrly p/r x 3
     Route: 065
     Dates: start: 20120529, end: 20120529
  27. DANTRON [Concomitant]
     Dosage: 4 mg 6 hrly prn
     Route: 050
     Dates: start: 20120527
  28. ATIVAN [Concomitant]
     Dosage: 4 hrly prn
     Route: 050
     Dates: start: 20120527
  29. ELTROXIN [Concomitant]
     Route: 048
     Dates: start: 20120528
  30. ANDOLEX C SPRAY [Concomitant]
     Dosage: PRN
     Route: 050
     Dates: start: 20120527
  31. LASIX [Concomitant]
     Route: 050
  32. SLOW-K [Concomitant]
     Route: 065
     Dates: start: 20120531
  33. PREDNISONE [Concomitant]
     Route: 048
     Dates: start: 20120531
  34. CALCIFEROL [Concomitant]
     Dosage: ^50000 u^
     Route: 065
  35. SIMVASTATIN [Concomitant]
     Route: 048
  36. SIMVASTATIN [Concomitant]
     Route: 048
     Dates: start: 20120531
  37. FLUOXETINE [Concomitant]
     Route: 048
  38. DORMICUM (SOUTH AFRICA) [Concomitant]
     Route: 048
     Dates: start: 20120526
  39. MOVICOL [Concomitant]
     Route: 048
     Dates: start: 20120530
  40. ECOTRIN [Concomitant]
     Route: 048
  41. ROACTEMRA [Suspect]
     Indication: RHEUMATOID ARTHRITIS
     Dosage: LAST DOSE PRIOR TO SAE:26/Apr/2012
     Route: 042
     Dates: start: 20110304, end: 20120525
  42. PLACEBO [Suspect]
     Indication: RHEUMATOID ARTHRITIS
     Dosage: Last dose prir to SAE on 18/May/2012
     Route: 048
     Dates: start: 20110304, end: 20120525

REACTIONS (4)
  - Aortic arteriosclerosis [Recovered/Resolved]
  - Peripheral vascular disorder [Recovered/Resolved]
  - Infarction [Recovered/Resolved]
  - Aortic stenosis [Recovered/Resolved]
